FAERS Safety Report 8204575-6 (Version None)
Quarter: 2012Q1

REPORT INFORMATION
  Report Type: 
  Country: None (occurrence: None)
  Receive Date: 20120313
  Receipt Date: 20120309
  Transmission Date: 20120608
  Serious: Yes (Life-Threatening, Hospitalization, Other)
  Sender: FDA-Public Use
  Company Number: ES-PFIZER INC-2012062751

PATIENT
  Age: 79 Year
  Sex: Male

DRUGS (4)
  1. OMEPRAZOLE [Concomitant]
     Indication: PROPHYLAXIS
     Dosage: 20 MG, 1X/DAY
     Route: 048
  2. SINTROM [Interacting]
     Indication: ATRIAL FIBRILLATION
     Dosage: 4 MG, UNK
     Route: 048
     Dates: start: 20000101, end: 20090413
  3. SERTRALINE HYDROCHLORIDE [Suspect]
     Dosage: 25MG DAILY
     Route: 048
     Dates: start: 20090408, end: 20090413
  4. MANIDON [Concomitant]
     Indication: HYPERTENSION
     Dosage: 120 MG, 1X/DAY
     Route: 048
     Dates: start: 20060101, end: 20090413

REACTIONS (7)
  - ARRHYTHMIA [None]
  - HEMIPARESIS [None]
  - ATRIAL FIBRILLATION [None]
  - DRUG INTERACTION [None]
  - HAEMORRHAGE INTRACRANIAL [None]
  - VIITH NERVE PARALYSIS [None]
  - DYSARTHRIA [None]
